FAERS Safety Report 13523285 (Version 1)
Quarter: 2017Q2

REPORT INFORMATION
  Report Type: Spontaneous
  Country: US (occurrence: US)
  Receive Date: 20170508
  Receipt Date: 20170508
  Transmission Date: 20170830
  Serious: No
  Sender: FDA-Public Use
  Company Number: US-VIFOR (INTERNATIONAL) INC.-VIT-2017-01604

PATIENT
  Sex: Female

DRUGS (16)
  1. VELTASSA [Suspect]
     Active Substance: PATIROMER
     Indication: HYPERKALAEMIA
     Route: 048
     Dates: start: 20160511
  2. PROAIR HFA [Concomitant]
     Active Substance: ALBUTEROL SULFATE
  3. FUROSEMIDE. [Concomitant]
     Active Substance: FUROSEMIDE
  4. LEVEMIR [Concomitant]
     Active Substance: INSULIN DETEMIR
  5. PRAVACHOL [Concomitant]
     Active Substance: PRAVASTATIN SODIUM
  6. SYNTHROID [Concomitant]
     Active Substance: LEVOTHYROXINE SODIUM
  7. CARVEDILOL. [Concomitant]
     Active Substance: CARVEDILOL
  8. DOXYCYCLINE HYCLATE. [Concomitant]
     Active Substance: DOXYCYCLINE HYCLATE
  9. BENICAR [Concomitant]
     Active Substance: OLMESARTAN MEDOXOMIL
  10. ADVAIR DISKUS [Concomitant]
     Active Substance: FLUTICASONE PROPIONATE\SALMETEROL XINAFOATE
  11. VALSARTAN. [Concomitant]
     Active Substance: VALSARTAN
  12. BIOTIN [Concomitant]
     Active Substance: BIOTIN
  13. VICTOZA [Concomitant]
     Active Substance: LIRAGLUTIDE
  14. ASPIRIN. [Concomitant]
     Active Substance: ASPIRIN
  15. CLONIDINE HYDROCHLORIDE. [Concomitant]
     Active Substance: CLONIDINE HYDROCHLORIDE
  16. KAYEXALATE [Concomitant]
     Active Substance: SODIUM POLYSTYRENE SULFONATE

REACTIONS (1)
  - Unevaluable event [Unknown]
